FAERS Safety Report 6287177-0 (Version None)
Quarter: 2009Q3

REPORT INFORMATION
  Report Type: 
  Country: None (occurrence: None)
  Receive Date: 20090728
  Receipt Date: 20090717
  Transmission Date: 20100115
  Serious: Yes (Life-Threatening)
  Sender: FDA-Public Use
  Company Number: HK-GENENTECH-287199

PATIENT
  Sex: Male

DRUGS (8)
  1. BLINDED BEVACIZUMAB [Suspect]
     Indication: GASTRIC CANCER
     Dosage: UNK
     Dates: start: 20081203
  2. BLINDED CAPECITABINE [Suspect]
     Indication: GASTRIC CANCER
     Dosage: UNK
     Dates: start: 20081203
  3. CISPLATIN [Suspect]
     Indication: GASTRIC CANCER
     Dosage: UNK
     Dates: start: 20081203
  4. BLINDED PLACEBO [Suspect]
     Indication: GASTRIC CANCER
     Dosage: UNK
     Dates: start: 20081203
  5. CAPECITABINE [Suspect]
     Indication: GASTRIC CANCER
     Dosage: 2000 MG/M2, UNK
     Route: 048
     Dates: start: 20081203
  6. CISPLATIN [Suspect]
     Indication: GASTRIC CANCER
     Dosage: 80 MG/M2, UNK
     Route: 042
     Dates: start: 20081203
  7. MULTIVITAMIN NOS [Concomitant]
     Indication: DRUG USE FOR UNKNOWN INDICATION
     Dosage: UNK
     Dates: start: 20090122, end: 20090625
  8. POTASSIUM CHLORIDE [Concomitant]
     Indication: DRUG USE FOR UNKNOWN INDICATION
     Dosage: UNK
     Dates: start: 20090220, end: 20090604

REACTIONS (1)
  - ANAEMIA [None]
